FAERS Safety Report 25244567 (Version 1)
Quarter: 2025Q2

REPORT INFORMATION
  Report Type: Report from Study
  Country: CA (occurrence: CA)
  Receive Date: 20250428
  Receipt Date: 20250428
  Transmission Date: 20250717
  Serious: Yes (Death, Other)
  Sender: TAKEDA
  Company Number: CA-TAKEDA-2020TUS058781

PATIENT
  Age: 75 Year
  Sex: Female
  Weight: 70 kg

DRUGS (10)
  1. HUMAN IMMUNOGLOBULIN G [Suspect]
     Active Substance: HUMAN IMMUNOGLOBULIN G
     Indication: Primary immunodeficiency syndrome
     Dosage: 10 GRAM, 1/WEEK
     Dates: start: 20200402
  2. HUMAN IMMUNOGLOBULIN G [Suspect]
     Active Substance: HUMAN IMMUNOGLOBULIN G
  3. FOLIC ACID [Concomitant]
     Active Substance: FOLIC ACID
     Indication: Product used for unknown indication
  4. IRON [Concomitant]
     Active Substance: IRON
     Indication: Product used for unknown indication
  5. Paroxetin teva [Concomitant]
     Dosage: 20 MILLIGRAM, QD
  6. Zopiclone teva [Concomitant]
     Dosage: 0.5 MILLIGRAM, QD
  7. ACTEMRA [Concomitant]
     Active Substance: TOCILIZUMAB
     Dosage: UNK UNK, Q3WEEKS
  8. Gaminex [Concomitant]
     Dosage: UNK UNK, MONTHLY
  9. RABEPRAZOLE [Concomitant]
     Active Substance: RABEPRAZOLE
     Dosage: 20 MILLIGRAM, BID
  10. NADOLOL [Concomitant]
     Active Substance: NADOLOL
     Indication: Portal hypertension
     Dosage: 20 MILLIGRAM, QD

REACTIONS (3)
  - Neoplasm malignant [Fatal]
  - Full blood count decreased [Not Recovered/Not Resolved]
  - Fatigue [Not Recovered/Not Resolved]

NARRATIVE: CASE EVENT DATE: 20201125
